FAERS Safety Report 10279961 (Version 1)
Quarter: 2014Q3

REPORT INFORMATION
  Report Type: Spontaneous
  Country: US (occurrence: None)
  Receive Date: 20140702
  Receipt Date: 20140702
  Transmission Date: 20150326
  Serious: Yes (Other)
  Sender: FDA-Public Use
  Company Number: DAV-AE-LOR-14-05

PATIENT
  Age: 50 Year
  Sex: Female

DRUGS (7)
  1. MIRTAZIPINE [Concomitant]
  2. BUPROPION [Concomitant]
     Active Substance: BUPROPION
  3. PAROXETINE [Concomitant]
     Active Substance: PAROXETINE\PAROXETINE HYDROCHLORIDE
  4. FLUOXETINE [Concomitant]
     Active Substance: FLUOXETINE\FLUOXETINE HYDROCHLORIDE
  5. LORAZEPAM. [Suspect]
     Active Substance: LORAZEPAM
     Indication: ANXIETY
  6. SERTRALINE [Concomitant]
     Active Substance: SERTRALINE HYDROCHLORIDE
  7. CITALOPRAM [Concomitant]
     Active Substance: CITALOPRAM HYDROBROMIDE

REACTIONS (11)
  - Motor dysfunction [None]
  - Suicidal ideation [None]
  - Night sweats [None]
  - Constipation [None]
  - Weight increased [None]
  - Loss of libido [None]
  - Tachycardia [None]
  - Somnolence [None]
  - Insomnia [None]
  - Anxiety [None]
  - Depression [None]
